FAERS Safety Report 6354877-3 (Version None)
Quarter: 2009Q3

REPORT INFORMATION
  Report Type: 
  Country: None (occurrence: None)
  Receive Date: 20090914
  Receipt Date: 20090901
  Transmission Date: 20100115
  Serious: Yes (Other)
  Sender: FDA-Public Use
  Company Number: DE-GENENTECH-289955

PATIENT
  Sex: Male

DRUGS (2)
  1. BEVACIZUMAB [Suspect]
     Indication: HEPATIC NEOPLASM MALIGNANT
     Dosage: UNK
     Route: 042
  2. RAD001 [Suspect]
     Indication: HEPATIC NEOPLASM MALIGNANT
     Dosage: 2.5 MG, Q2D
     Route: 048

REACTIONS (1)
  - UROSEPSIS [None]
